FAERS Safety Report 8676437 (Version 2)
Quarter: 2012Q4

REPORT INFORMATION
  Report Type: 
  Country: FR (occurrence: FR)
  Receive Date: 20120720
  Receipt Date: 20121031
  Transmission Date: 20130627
  Serious: Yes (Hospitalization)
  Sender: FDA-Public Use
  Company Number: FR-BAXTER-2012BAX011027

PATIENT
  Age: 57 Year
  Sex: Male

DRUGS (13)
  1. ENDOXAN 50 MG, COMPRIM? ENROB? [Suspect]
     Indication: CHRONIC LYMPHOID LEUKEMIA
     Route: 048
     Dates: start: 20120428, end: 20120430
  2. ENDOXAN 50 MG, COMPRIM? ENROB? [Suspect]
     Route: 048
     Dates: start: 20120602, end: 20120604
  3. MABTHERA [Suspect]
     Indication: CHRONIC LYMPHOID LEUKEMIA
     Route: 042
     Dates: start: 20120427, end: 20120427
  4. MABTHERA [Suspect]
     Route: 042
     Dates: start: 20120601, end: 20120601
  5. FLUDARA [Suspect]
     Indication: CHRONIC LYMPHOID LEUKEMIA
     Route: 048
     Dates: start: 20120428, end: 20120430
  6. FLUDARA [Suspect]
     Route: 048
     Dates: start: 20120602, end: 20120604
  7. BACTRIM [Concomitant]
     Indication: DRUG USE FOR UNKNOWN INDICATION
     Dosage: 1 tablet
     Route: 048
     Dates: start: 20120527
  8. SEROPLEX [Concomitant]
     Indication: DRUG USE FOR UNKNOWN INDICATION
     Route: 048
  9. DEDROGYL [Concomitant]
     Indication: DRUG USE FOR UNKNOWN INDICATION
     Dosage: 15MG/100ML
     Route: 048
  10. PHOSPHONEUROS [Concomitant]
     Indication: DRUG USE FOR UNKNOWN INDICATION
     Route: 048
  11. MAG 2 [Concomitant]
     Indication: DRUG USE FOR UNKNOWN INDICATION
     Route: 048
  12. DIFRAREL [Concomitant]
     Indication: DRUG USE FOR UNKNOWN INDICATION
     Route: 048
  13. ZELITREX [Concomitant]
     Indication: DRUG USE FOR UNKNOWN INDICATION
     Route: 048
     Dates: start: 20120507

REACTIONS (6)
  - Rash maculo-papular [Recovered/Resolved]
  - Pyrexia [Recovered/Resolved]
  - Neutropenia [Recovered/Resolved]
  - Oedema peripheral [Recovered/Resolved]
  - Blood creatinine increased [Recovered/Resolved]
  - Alanine aminotransferase increased [Not Recovered/Not Resolved]
